FAERS Safety Report 7133395-9 (Version None)
Quarter: 2010Q4

REPORT INFORMATION
  Report Type: 
  Country: None (occurrence: None)
  Receive Date: 20101202
  Receipt Date: 20101126
  Transmission Date: 20110411
  Serious: Yes (Hospitalization)
  Sender: FDA-Public Use
  Company Number: ES-PFIZER INC-2010159042

PATIENT
  Age: 70 Year
  Sex: Female

DRUGS (2)
  1. AROMASIN [Suspect]
     Indication: BREAST CANCER
     Dosage: UNK
     Route: 048
     Dates: start: 20100830
  2. MICARDIS [Concomitant]
     Indication: HYPERTENSION

REACTIONS (5)
  - ANAEMIA [None]
  - ASTHENIA [None]
  - LEUKOPENIA [None]
  - MALAISE [None]
  - PYREXIA [None]
